FAERS Safety Report 10973410 (Version 1)
Quarter: 2015Q2

REPORT INFORMATION
  Report Type: Spontaneous
  Country: BR (occurrence: BR)
  Receive Date: 20150401
  Receipt Date: 20150401
  Transmission Date: 20150821
  Serious: Yes (Other)
  Sender: FDA-Public Use
  Company Number: BR-AMGEN-BRASP2014006554

PATIENT
  Age: 57 Year
  Sex: Female
  Weight: 69 kg

DRUGS (6)
  1. OSCAL [Concomitant]
     Active Substance: CALCIUM CARBONATE
     Indication: FIBROMYALGIA
     Dosage: UNK
     Dates: start: 201305
  2. DEPURA [Concomitant]
     Active Substance: CHOLECALCIFEROL
     Indication: OSTEOPOROSIS
     Dosage: UNK
     Dates: start: 201305
  3. ENBREL [Suspect]
     Active Substance: ETANERCEPT
     Indication: PSORIATIC ARTHROPATHY
     Dosage: 50 MG, ONCE WEEKLY
     Route: 058
     Dates: start: 2013, end: 201409
  4. MYTEDON [Concomitant]
     Indication: FIBROMYALGIA
     Dosage: UNK
     Dates: start: 201302
  5. ENDOFOLIN [Concomitant]
     Active Substance: FOLIC ACID
     Indication: OSTEOPOROSIS
     Dosage: UNK
     Dates: start: 201305
  6. ENBREL [Suspect]
     Active Substance: ETANERCEPT
     Dosage: UNK
     Route: 065

REACTIONS (5)
  - Appendix cancer [Not Recovered/Not Resolved]
  - Abdominal neoplasm [Not Recovered/Not Resolved]
  - Injection site mass [Unknown]
  - Injection site pruritus [Unknown]
  - Injection site erythema [Unknown]

NARRATIVE: CASE EVENT DATE: 201401
